FAERS Safety Report 5818768-6 (Version None)
Quarter: 2008Q3

REPORT INFORMATION
  Report Type: 
  Country: None (occurrence: None)
  Receive Date: 20080721
  Receipt Date: 20080721
  Transmission Date: 20090109
  Serious: Yes (Other)
  Sender: FDA-Public Use
  Company Number: None

PATIENT
  Sex: Male
  Weight: 88.3 kg

DRUGS (1)
  1. CEFTAZIDIME [Suspect]

REACTIONS (3)
  - DERMATITIS EXFOLIATIVE [None]
  - DRUG HYPERSENSITIVITY [None]
  - RASH PAPULAR [None]
